FAERS Safety Report 7234876-X (Version None)
Quarter: 2011Q1

REPORT INFORMATION
  Report Type: 
  Country: None (occurrence: None)
  Receive Date: 20110120
  Receipt Date: 20110114
  Transmission Date: 20110831
  Serious: No
  Sender: FDA-Public Use
  Company Number: US-PFIZER INC-2011011559

PATIENT

DRUGS (1)
  1. VFEND [Suspect]
     Indication: BRAIN ABSCESS

REACTIONS (1)
  - MYALGIA [None]
